FAERS Safety Report 8805604 (Version 1)
Quarter: 2012Q4

REPORT INFORMATION
  Report Type: 
  Country: US (occurrence: US)
  Receive Date: 20120924
  Receipt Date: 20120924
  Transmission Date: 20130627
  Serious: Yes (Death)
  Sender: FDA-Public Use
  Company Number: US-ROCHE-1123192

PATIENT
  Sex: Male

DRUGS (3)
  1. AVASTIN [Suspect]
     Indication: PANCREATIC CARCINOMA
     Route: 042
     Dates: start: 200601, end: 200604
  2. GEMCITABINE [Concomitant]
  3. XELODA [Concomitant]

REACTIONS (2)
  - Disease progression [Fatal]
  - Drug ineffective [Unknown]
